FAERS Safety Report 20546411 (Version 3)
Quarter: 2022Q2

REPORT INFORMATION
  Report Type: Report from Study
  Country: US (occurrence: US)
  Receive Date: 20220303
  Receipt Date: 20220527
  Transmission Date: 20220721
  Serious: No
  Sender: FDA-Public Use
  Company Number: US-NOVARTISTESTPH-NVSC2022US049774

PATIENT
  Sex: Female

DRUGS (2)
  1. COSENTYX [Suspect]
     Active Substance: SECUKINUMAB
     Indication: Psoriatic arthropathy
     Dosage: 300 MG, QW
     Route: 058
  2. COSENTYX [Suspect]
     Active Substance: SECUKINUMAB
     Indication: Psoriasis

REACTIONS (8)
  - Hypersensitivity [Unknown]
  - Pruritus [Unknown]
  - Burning sensation [Unknown]
  - Eye swelling [Unknown]
  - Injection site pain [Recovering/Resolving]
  - Swelling [Recovering/Resolving]
  - Ocular hyperaemia [Unknown]
  - Dry eye [Recovering/Resolving]
